FAERS Safety Report 8204221-1 (Version None)
Quarter: 2012Q1

REPORT INFORMATION
  Report Type: 
  Country: None (occurrence: None)
  Receive Date: 20120313
  Receipt Date: 20120309
  Transmission Date: 20120608
  Serious: Yes (Death)
  Sender: FDA-Public Use
  Company Number: JP-EISAI INC-E2020-10479-SPO-JP

PATIENT
  Age: 83 Year
  Sex: Female

DRUGS (5)
  1. ARICEPT [Suspect]
     Route: 048
     Dates: start: 20120306
  2. OLMESARTAN MEDOXOMIL [Concomitant]
     Indication: HYPERTENSION
     Route: 048
  3. ARICEPT [Suspect]
     Route: 048
     Dates: start: 20120301, end: 20120305
  4. AMLODIPINE [Suspect]
     Indication: HYPERTENSION
     Route: 048
  5. ARICEPT [Suspect]
     Indication: DEMENTIA ALZHEIMER'S TYPE
     Route: 048
     Dates: start: 20120216, end: 20120229

REACTIONS (3)
  - PULMONARY OEDEMA [None]
  - NAUSEA [None]
  - DECREASED APPETITE [None]
